FAERS Safety Report 5739899-5 (Version None)
Quarter: 2008Q2

REPORT INFORMATION
  Report Type: 
  Country: None (occurrence: None)
  Receive Date: 20080516
  Receipt Date: 20080505
  Transmission Date: 20081010
  Serious: Yes (Disabling)
  Sender: FDA-Public Use
  Company Number: US-JNJFOC-20080501146

PATIENT
  Sex: Male
  Weight: 107.96 kg

DRUGS (12)
  1. TOPAMAX [Suspect]
     Route: 048
  2. TOPAMAX [Suspect]
     Indication: MIGRAINE PROPHYLAXIS
     Dosage: 25MG - 100MG DOSE
     Route: 048
  3. ASPIRIN [Concomitant]
     Indication: CARDIAC DISORDER
  4. HYZAAR [Concomitant]
     Indication: CARDIAC DISORDER
  5. TOPROL-XL [Concomitant]
     Indication: CARDIAC DISORDER
  6. ALLERGY MEDICATION [Concomitant]
     Indication: SEASONAL ALLERGY
  7. ISOPHANE INSULIN [Concomitant]
     Indication: DIABETES MELLITUS
  8. FIORINAL W/CODEINE [Concomitant]
     Indication: MIGRAINE
  9. BYETTA [Concomitant]
     Indication: DIABETES MELLITUS
  10. HUMULIN R [Concomitant]
     Indication: DIABETES MELLITUS
  11. ZOCOR [Concomitant]
     Indication: BLOOD CHOLESTEROL
  12. LANTUS [Concomitant]
     Indication: DIABETES MELLITUS

REACTIONS (3)
  - DISTURBANCE IN ATTENTION [None]
  - EXPRESSIVE LANGUAGE DISORDER [None]
  - SPEECH DISORDER [None]
